FAERS Safety Report 15922258 (Version 1)
Quarter: 2019Q1

REPORT INFORMATION
  Report Type: Spontaneous
  Country: PL (occurrence: PL)
  Receive Date: 20190206
  Receipt Date: 20190206
  Transmission Date: 20190417
  Serious: Yes (Death, Hospitalization, Other)
  Sender: FDA-Public Use
  Company Number: PL-ROCHE-2247127

PATIENT
  Age: 31 Year
  Sex: Male

DRUGS (26)
  1. FOSCARNET [Concomitant]
     Active Substance: FOSCARNET
     Route: 065
  2. GANCICLOVIR. [Concomitant]
     Active Substance: GANCICLOVIR
     Route: 042
  3. LEFLUNOMIDE. [Concomitant]
     Active Substance: LEFLUNOMIDE
     Indication: IMMUNOSUPPRESSION
     Dosage: 2 X 20 MG
     Route: 048
  4. VALGANCICLOVIR. [Concomitant]
     Active Substance: VALGANCICLOVIR
     Indication: CYTOMEGALOVIRUS INFECTION
     Route: 065
  5. METHYLPREDNISOLONE. [Suspect]
     Active Substance: METHYLPREDNISOLONE
     Indication: IMMUNOSUPPRESSION
     Route: 042
  6. GANCICLOVIR. [Concomitant]
     Active Substance: GANCICLOVIR
     Route: 042
  7. MYCOPHENOLATE MOFETIL. [Suspect]
     Active Substance: MYCOPHENOLATE MOFETIL
     Indication: PROPHYLAXIS AGAINST TRANSPLANT REJECTION
     Route: 065
  8. ANTITHYMOCYTE IMMUNOGLOBULIN [Suspect]
     Active Substance: THYMOCYTE IMMUNE GLOBULIN NOS
     Indication: PROPHYLAXIS AGAINST TRANSPLANT REJECTION
     Route: 065
  9. IMMUNE GLOBULIN NOS [Concomitant]
     Active Substance: IMMUNE GLOBULIN NOS
     Dosage: 1 G/KG OF BODY MASS
     Route: 042
  10. FOSCARNET [Concomitant]
     Active Substance: FOSCARNET
     Route: 065
  11. VALGANCICLOVIR. [Concomitant]
     Active Substance: VALGANCICLOVIR
     Indication: ANTIVIRAL PROPHYLAXIS
     Route: 065
  12. GANCICLOVIR. [Concomitant]
     Active Substance: GANCICLOVIR
     Indication: CYTOMEGALOVIRUS INFECTION
     Dosage: 2X5 MG/KG OF BODY MASS
     Route: 042
  13. MESALAZINE [Concomitant]
     Active Substance: MESALAMINE
     Indication: COLITIS ULCERATIVE
     Route: 065
  14. SULFAMETHOXAZOLE/TRIMETHOPRIM [Suspect]
     Active Substance: SULFAMETHOXAZOLE\TRIMETHOPRIM
     Indication: ANTIFUNGAL PROPHYLAXIS
     Dosage: 3 X 1440 MG
     Route: 065
  15. TACROLIMUS. [Suspect]
     Active Substance: TACROLIMUS
     Indication: PROPHYLAXIS AGAINST TRANSPLANT REJECTION
     Route: 065
  16. METHYLPREDNISOLONE. [Suspect]
     Active Substance: METHYLPREDNISOLONE
     Route: 042
  17. PREDNISOLONE. [Suspect]
     Active Substance: PREDNISOLONE
     Route: 065
  18. FOSCARNET [Concomitant]
     Active Substance: FOSCARNET
     Indication: IMMUNOSUPPRESSION
     Dosage: 2  X 60 MG/KG OF BODY MASS.
     Route: 065
  19. SANDOGLOBULIN [Concomitant]
     Active Substance: HUMAN IMMUNOGLOBULIN G
     Route: 065
  20. MECLIZINE [Concomitant]
     Active Substance: MECLIZINE HYDROCHLORIDE
     Indication: COLITIS ULCERATIVE
     Route: 065
  21. VELCADE [Suspect]
     Active Substance: BORTEZOMIB
     Indication: IMMUNOSUPPRESSION
     Dosage: 4X2 MG 1.25 MG/M2 OF BODY SURFACE
     Route: 042
  22. FILGRASTIM [Concomitant]
     Active Substance: FILGRASTIM
     Indication: NEUTROPENIA
     Route: 065
  23. GANCICLOVIR. [Concomitant]
     Active Substance: GANCICLOVIR
     Route: 042
  24. MYCOPHENOLATE MOFETIL. [Suspect]
     Active Substance: MYCOPHENOLATE MOFETIL
     Route: 065
  25. SULFAMETHOXAZOLE/TRIMETHOPRIM [Suspect]
     Active Substance: SULFAMETHOXAZOLE\TRIMETHOPRIM
     Route: 065
  26. PREDNISOLONE. [Suspect]
     Active Substance: PREDNISOLONE
     Indication: IMMUNOSUPPRESSION
     Route: 065

REACTIONS (7)
  - Respiratory distress [Fatal]
  - Hypogammaglobulinaemia [Unknown]
  - Pulmonary fibrosis [Unknown]
  - Pneumocystis jirovecii infection [Unknown]
  - Drug ineffective [Fatal]
  - Cytomegalovirus infection [Unknown]
  - Upper respiratory tract infection [Unknown]
